FAERS Safety Report 7941930-3 (Version None)
Quarter: 2011Q4

REPORT INFORMATION
  Report Type: 
  Country: None (occurrence: None)
  Receive Date: 20111128
  Receipt Date: 20111118
  Transmission Date: 20120403
  Serious: Yes (Other)
  Sender: FDA-Public Use
  Company Number: US-BAYER-2011-077867

PATIENT
  Age: 34 Year
  Sex: Female
  Weight: 104.31 kg

DRUGS (4)
  1. YAZ [Suspect]
     Dosage: UNK
     Dates: start: 20081201
  2. YASMIN [Suspect]
     Indication: CONTRACEPTION
     Dosage: UNK
     Dates: start: 20071227, end: 20080601
  3. YASMIN [Suspect]
     Dosage: UNK
     Dates: start: 20081201
  4. YAZ [Suspect]
     Indication: CONTRACEPTION
     Dosage: UNK
     Dates: start: 20080609, end: 20100501

REACTIONS (3)
  - EMOTIONAL DISTRESS [None]
  - BILIARY COLIC [None]
  - CHOLECYSTITIS CHRONIC [None]
